FAERS Safety Report 4686237-5 (Version None)
Quarter: 2005Q2

REPORT INFORMATION
  Report Type: 
  Country: None (occurrence: None)
  Receive Date: 20050609
  Receipt Date: 20050531
  Transmission Date: 20051028
  Serious: Yes (Other)
  Sender: FDA-Public Use
  Company Number: CA-GLAXOSMITHKLINE-A0561636A

PATIENT
  Age: 35 Year
  Sex: Male

DRUGS (1)
  1. PAXIL [Suspect]
     Indication: DRUG USE FOR UNKNOWN INDICATION
     Dosage: 2000MG SINGLE DOSE
     Route: 048

REACTIONS (7)
  - BRADYCARDIA [None]
  - COORDINATION ABNORMAL [None]
  - HYPERTENSION [None]
  - INTENTIONAL MISUSE [None]
  - MUSCLE SPASMS [None]
  - MUSCLE TWITCHING [None]
  - VOMITING [None]
